FAERS Safety Report 9343798 (Version 2)
Quarter: 2013Q3

REPORT INFORMATION
  Report Type: Spontaneous
  Country: US (occurrence: US)
  Receive Date: 20130612
  Receipt Date: 20130702
  Transmission Date: 20140515
  Serious: Yes (Other)
  Sender: FDA-Public Use
  Company Number: US-SANOFI-AVENTIS-2013SA058757

PATIENT
  Age: 56 Year
  Sex: Female
  Weight: 71.21 kg

DRUGS (31)
  1. LANTUS SOLOSTAR [Suspect]
     Indication: TYPE 2 DIABETES MELLITUS
     Dosage: DOSE:20 UNIT(S)
     Route: 058
     Dates: start: 201205
  2. SOLOSTAR [Suspect]
     Indication: TYPE 2 DIABETES MELLITUS
  3. ICAPS [Concomitant]
     Dosage: DOSE: 2
     Route: 048
  4. FERROUS FUMARATE/IRON [Concomitant]
     Dosage: DOSE: 1
     Route: 048
  5. HUMALOG [Concomitant]
     Dosage: DOSE:100 UNIT(S)
     Route: 058
  6. ZADITOR [Concomitant]
     Dosage: 0.025% SOLUTION 1 DROP EACH EYE
     Route: 047
  7. VITAMIN D [Concomitant]
     Dosage: DOSE:5000 UNIT(S)
     Route: 048
  8. VITAMIN A [Concomitant]
     Dosage: DOSE:8000 UNIT(S)
     Route: 048
  9. NAPROSYN [Concomitant]
     Route: 048
  10. LUMIGAN [Concomitant]
     Dosage: 0.03% SOLUTION 1 DROP EACH EYE
     Route: 047
  11. SYNTHROID [Concomitant]
     Route: 048
  12. PROVENTIL [Concomitant]
  13. KAPIDEX [Concomitant]
     Route: 048
  14. SOMA [Concomitant]
     Route: 048
  15. MEDROL [Concomitant]
     Route: 048
  16. ALBUTEROL SULFATE [Concomitant]
     Dosage: 2 PUFFS INHALATION
  17. SYMBICORT [Concomitant]
     Dosage: 160-4.5MCG/ACT AEROSOL 2 PUFFS INHALATION
  18. CALCIUM [Concomitant]
     Dosage: 2 OAL DAILY
     Route: 048
  19. CARDIZEM CD [Concomitant]
     Route: 048
  20. RANEXA [Concomitant]
     Route: 048
  21. DIGOXIN [Concomitant]
     Route: 048
  22. PLAVIX [Concomitant]
     Route: 048
  23. DIOVANE [Concomitant]
     Route: 048
  24. MAGNESIUM OXIDE [Concomitant]
     Route: 048
  25. LIPITOR [Concomitant]
     Route: 048
  26. IMDUR [Concomitant]
     Route: 048
  27. ALPHAGAN [Concomitant]
     Dosage: 0.1 % BOTH EYES
  28. METFORMIN [Concomitant]
  29. FLUTICASONE PROPIONATE [Concomitant]
     Dosage: NASEL SPRAY 2 PUFFS
  30. FUROSEMIDE [Concomitant]
  31. KLOR-CON [Concomitant]

REACTIONS (4)
  - Spinal fracture [Unknown]
  - Rheumatoid arthritis [Unknown]
  - Hypertension [Unknown]
  - Hyperlipidaemia [Unknown]
